FAERS Safety Report 11446294 (Version 1)
Quarter: 2015Q3

REPORT INFORMATION
  Report Type: Spontaneous
  Country: None (occurrence: None)
  Receive Date: 20150901
  Receipt Date: 20150901
  Transmission Date: 20151125
  Serious: Yes (Life-Threatening)
  Sender: FDA-Public Use
  Company Number: None

PATIENT
  Age: 83 Year
  Sex: Female
  Weight: 72.6 kg

DRUGS (3)
  1. APIXABAN [Concomitant]
     Active Substance: APIXABAN
  2. ASPIRIN. [Concomitant]
     Active Substance: ASPIRIN
  3. APIXABAN 2.5 MG [Suspect]
     Active Substance: APIXABAN
     Indication: ATRIAL FIBRILLATION
     Dosage: 1 PILL
     Route: 048
     Dates: start: 20140701, end: 20150826

REACTIONS (2)
  - Brain compression [None]
  - Cerebellar haemorrhage [None]

NARRATIVE: CASE EVENT DATE: 20150827
